FAERS Safety Report 7558931-X (Version None)
Quarter: 2011Q2

REPORT INFORMATION
  Report Type: 
  Country: None (occurrence: None)
  Receive Date: 20110621
  Receipt Date: 20110613
  Transmission Date: 20111010
  Serious: Yes (Other)
  Sender: FDA-Public Use
  Company Number: FR-JNJFOC-20100708508

PATIENT
  Weight: 6.3 kg

DRUGS (2)
  1. NORVIR [Concomitant]
     Indication: DRUG EXPOSURE DURING PREGNANCY
     Route: 015
  2. PREZISTA [Suspect]
     Indication: DRUG EXPOSURE DURING PREGNANCY
     Route: 015

REACTIONS (1)
  - GROWTH RETARDATION [None]
